FAERS Safety Report 5551942-5 (Version None)
Quarter: 2007Q4

REPORT INFORMATION
  Report Type: 
  Country: None (occurrence: None)
  Receive Date: 20071129
  Receipt Date: 20070620
  Transmission Date: 20080405
  Serious: Yes (Hospitalization)
  Sender: FDA-Public Use
  Company Number: US200703002040

PATIENT
  Age: 29 Year
  Sex: Male
  Weight: 108.8 kg

DRUGS (6)
  1. ZYPREXA [Suspect]
     Dosage: 15 MG,
     Dates: start: 19990101, end: 20061204
  2. ABILIFY [Concomitant]
  3. SEROQUEL [Concomitant]
  4. LITHANE (LITHIUM CARBONATE) [Concomitant]
  5. PAXIL [Concomitant]
  6. EFFEXOR [Concomitant]

REACTIONS (4)
  - DIABETIC KETOACIDOSIS [None]
  - HYPERGLYCAEMIA [None]
  - PANCREATITIS CHRONIC [None]
  - TYPE 2 DIABETES MELLITUS [None]
